FAERS Safety Report 19944748 (Version 1)
Quarter: 2021Q4

REPORT INFORMATION
  Report Type: Spontaneous
  Country: US (occurrence: US)
  Receive Date: 20211011
  Receipt Date: 20211011
  Transmission Date: 20220303
  Serious: No
  Sender: FDA-Public Use
  Company Number: 2021A761722

PATIENT
  Age: 66 Year
  Sex: Female
  Weight: 46.7 kg

DRUGS (4)
  1. SAPHNELO [Suspect]
     Active Substance: ANIFROLUMAB-FNIA
     Indication: Systemic lupus erythematosus
     Route: 042
     Dates: start: 20211004
  2. WARFARIN [Concomitant]
     Active Substance: WARFARIN
     Indication: Antiphospholipid antibodies
     Dosage: 7 MG TUE-THU-SUN AND 8 MG ON MON-WED-FRI
  3. PREDNISONE [Concomitant]
     Active Substance: PREDNISONE
     Indication: Haemolytic anaemia
     Dosage: STARTED AT 40 MG AND NOW IT IS DOWN TO 5 MG, DAILY
  4. CALCITONIN SALMON [Concomitant]
     Active Substance: CALCITONIN SALMON
     Indication: Osteoporosis
     Dosage: 200 UNITS SP, ONCE EVERY NIGHT

REACTIONS (2)
  - Taste disorder [Recovered/Resolved]
  - Bone pain [Recovered/Resolved]

NARRATIVE: CASE EVENT DATE: 20211004
